FAERS Safety Report 9040237 (Version 1)
Quarter: 2013Q1

REPORT INFORMATION
  Report Type: Spontaneous
  Country: US (occurrence: PR)
  Receive Date: 20130129
  Receipt Date: 20130129
  Transmission Date: 20140127
  Serious: No
  Sender: FDA-Public Use
  Company Number: PR-ABBOTT-12P-131-0894880-00

PATIENT
  Sex: Male
  Weight: 81.72 kg

DRUGS (3)
  1. HUMIRA 40 MG/0.8 ML PEN [Suspect]
     Indication: RHEUMATOID ARTHRITIS
     Route: 058
     Dates: start: 201111
  2. METFORMIN [Concomitant]
     Indication: DIABETES MELLITUS
     Route: 048
  3. CELEBREX [Concomitant]
     Indication: PRODUCT USED FOR UNKNOWN INDICATION
     Route: 048

REACTIONS (1)
  - Rash [Unknown]
